FAERS Safety Report 15058479 (Version 2)
Quarter: 2018Q3

REPORT INFORMATION
  Report Type: Spontaneous
  Country: US (occurrence: US)
  Receive Date: 20180625
  Receipt Date: 20180704
  Transmission Date: 20181010
  Serious: Yes (Hospitalization, Other)
  Sender: FDA-Public Use
  Company Number: US-GLENMARK PHARMACEUTICALS-2018GMK036190

PATIENT
  Age: 21 Year
  Sex: Female

DRUGS (7)
  1. VALPROIC ACID. [Suspect]
     Active Substance: VALPROIC ACID
     Indication: EPILEPSY
     Dosage: UNK
     Route: 065
  2. TOPIRAMATE. [Suspect]
     Active Substance: TOPIRAMATE
     Indication: EPILEPSY
     Dosage: UNK
     Route: 065
  3. LEVETIRACETAM. [Suspect]
     Active Substance: LEVETIRACETAM
     Indication: AFFECTIVE DISORDER
  4. TOPIRAMATE. [Suspect]
     Active Substance: TOPIRAMATE
     Indication: AFFECTIVE DISORDER
     Dosage: UNK, HALF DOSE
     Route: 065
  5. VALPROIC ACID. [Suspect]
     Active Substance: VALPROIC ACID
     Dosage: UNK, DECREASED DOSE
     Route: 065
  6. LACOSAMIDE. [Concomitant]
     Active Substance: LACOSAMIDE
     Indication: SEIZURE
     Dosage: UNK
     Route: 065
  7. LEVETIRACETAM. [Suspect]
     Active Substance: LEVETIRACETAM
     Indication: EPILEPSY
     Dosage: UNK
     Route: 065

REACTIONS (4)
  - Pneumonia [Unknown]
  - Drug dose omission [Unknown]
  - Hyperammonaemic encephalopathy [Recovered/Resolved]
  - Respiratory failure [Recovered/Resolved]
